FAERS Safety Report 18702402 (Version 2)
Quarter: 2021Q1

REPORT INFORMATION
  Report Type: Spontaneous
  Country: BE (occurrence: BE)
  Receive Date: 20210105
  Receipt Date: 20210115
  Transmission Date: 20210419
  Serious: Yes (Other)
  Sender: FDA-Public Use
  Company Number: BE-009507513-2011BEL008090

PATIENT
  Age: 40 Year
  Sex: Male
  Weight: 115.6 kg

DRUGS (5)
  1. METFORMIN [Concomitant]
     Active Substance: METFORMIN HYDROCHLORIDE
     Indication: TYPE 2 DIABETES MELLITUS
     Dosage: 850 MG, 2X/ DAY
     Route: 048
     Dates: start: 2017
  2. ONDANSETRON [Concomitant]
     Active Substance: ONDANSETRON
     Indication: NAUSEA
     Dosage: 4 MG, 2X/DAY
     Route: 048
     Dates: start: 20180801, end: 20190401
  3. L?THYROXIN [Concomitant]
     Active Substance: LEVOTHYROXINE SODIUM
     Indication: HYPOTHYROIDISM
     Dosage: 125 MCG, 1X/ DAY
     Route: 048
     Dates: start: 2013
  4. SUSTANON [Concomitant]
     Active Substance: TESTOSTERONE
     Indication: SECONDARY HYPOGONADISM
     Dosage: 250 MG, 1 X/4 WEEKS
     Route: 030
     Dates: start: 2013
  5. TEMODAL [Suspect]
     Active Substance: TEMOZOLOMIDE
     Indication: SECRETORY ADENOMA OF PITUITARY
     Dosage: 150?200 MG/M2, 5 DAYS IN A 28?DAY CYCLE (EVERY 4 WEEKS)
     Route: 048
     Dates: start: 20180801, end: 20190401

REACTIONS (4)
  - Fatigue [Not Recovered/Not Resolved]
  - Malignant neoplasm progression [Unknown]
  - Product use in unapproved indication [Unknown]
  - Nausea [Recovered/Resolved]

NARRATIVE: CASE EVENT DATE: 20180901
